FAERS Safety Report 15028573 (Version 1)
Quarter: 2018Q2

REPORT INFORMATION
  Report Type: Spontaneous
  Country: US (occurrence: US)
  Receive Date: 20180619
  Receipt Date: 20180619
  Transmission Date: 20180711
  Serious: Yes (Other)
  Sender: FDA-Public Use
  Company Number: US-PFIZER INC-2018242222

PATIENT
  Age: 21 Year
  Sex: Male

DRUGS (2)
  1. TEMSIROLIMUS [Suspect]
     Active Substance: TEMSIROLIMUS
     Dosage: 65 MG, UNK, (35 MG/M2 65 MG IV )
     Route: 042
     Dates: start: 20151102
  2. TEMSIROLIMUS [Suspect]
     Active Substance: TEMSIROLIMUS
     Dosage: 16 MG, UNK, (9 MG/M2 16 MG IV ON 30NOV2015 (25% DOSE))
     Route: 042
     Dates: start: 20151130, end: 20151214

REACTIONS (8)
  - Arthritis [Unknown]
  - Diarrhoea [Unknown]
  - Pyrexia [Unknown]
  - Myositis [Unknown]
  - Myalgia [Unknown]
  - Stomatitis [Unknown]
  - Anal inflammation [Unknown]
  - Mucosal inflammation [Unknown]

NARRATIVE: CASE EVENT DATE: 20151205
